FAERS Safety Report 12608342 (Version 2)
Quarter: 2017Q1

REPORT INFORMATION
  Report Type: Spontaneous
  Country: US (occurrence: US)
  Receive Date: 20160729
  Receipt Date: 20170112
  Transmission Date: 20170428
  Serious: No
  Sender: FDA-Public Use
  Company Number: US-DEPOMED, INC.-US-2016DEP008197

PATIENT

DRUGS (1)
  1. LAZANDA [Suspect]
     Active Substance: FENTANYL CITRATE
     Indication: CANCER PAIN
     Dosage: 100 ?G, QID
     Route: 045
     Dates: start: 201508

REACTIONS (4)
  - Irritability [Not Recovered/Not Resolved]
  - Malaise [Not Recovered/Not Resolved]
  - Cough [Not Recovered/Not Resolved]
  - Product container issue [Not Recovered/Not Resolved]

NARRATIVE: CASE EVENT DATE: 20160201
